FAERS Safety Report 6930959-X (Version None)
Quarter: 2010Q3

REPORT INFORMATION
  Report Type: 
  Country: None (occurrence: None)
  Receive Date: 20100818
  Receipt Date: 20100805
  Transmission Date: 20110219
  Serious: Yes (Other)
  Sender: FDA-Public Use
  Company Number: US-WATSON-2010-10613

PATIENT
  Age: 73 Year
  Sex: Male
  Weight: 95.238 kg

DRUGS (3)
  1. FENTANYL-100 [Suspect]
     Indication: PAIN
     Dosage: 1 PATCH Q 72 HRS
     Route: 062
     Dates: start: 20100708, end: 20100727
  2. FENTANYL-25 [Suspect]
     Indication: PAIN
     Dosage: 1 PATCH Q 72 HRS
     Route: 062
     Dates: start: 20100618, end: 20100707
  3. FENTANYL-50 [Suspect]
     Indication: PAIN
     Dosage: 1 PATCH Q 72 HRS
     Route: 062
     Dates: start: 20100611, end: 20100707

REACTIONS (4)
  - COUGH [None]
  - DRUG INEFFECTIVE [None]
  - INCREASED UPPER AIRWAY SECRETION [None]
  - SPINAL COMPRESSION FRACTURE [None]
